FAERS Safety Report 12417906 (Version 15)
Quarter: 2017Q4

REPORT INFORMATION
  Report Type: Report from Study
  Country: GB (occurrence: GB)
  Receive Date: 20160531
  Receipt Date: 20171116
  Transmission Date: 20180320
  Serious: Yes (Hospitalization)
  Sender: FDA-Public Use
  Company Number: GB-AMGEN-GBRCT2016069157

PATIENT
  Age: 54 Year
  Sex: Female
  Weight: 78.59 kg

DRUGS (12)
  1. DABRAFENIB [Suspect]
     Active Substance: DABRAFENIB
     Dosage: 150 MG, UNK
     Route: 048
     Dates: start: 20160119, end: 20160311
  2. TRAMETINIB [Suspect]
     Active Substance: TRAMETINIB
     Indication: COLORECTAL CANCER
     Dosage: 2 MG, UNK
     Route: 048
     Dates: start: 20150930, end: 20151020
  3. DABRAFENIB [Suspect]
     Active Substance: DABRAFENIB
     Dosage: 300 MG, UNK
     Route: 048
     Dates: start: 20151027, end: 20151101
  4. TRAMETINIB [Suspect]
     Active Substance: TRAMETINIB
     Dosage: 2 MG, UNK
     Route: 048
     Dates: start: 20151027, end: 20151101
  5. PANITUMUMAB [Suspect]
     Active Substance: PANITUMUMAB
     Indication: COLORECTAL CANCER
     Dosage: UNK
     Route: 042
     Dates: start: 20150930, end: 20160318
  6. PANITUMUMAB [Suspect]
     Active Substance: PANITUMUMAB
     Dosage: 315 MG, UNK
     Route: 042
     Dates: start: 20160412, end: 20160412
  7. DABRAFENIB [Suspect]
     Active Substance: DABRAFENIB
     Indication: COLORECTAL CANCER
     Dosage: 300 MG, UNK
     Route: 048
     Dates: start: 20150930, end: 20151020
  8. DABRAFENIB [Suspect]
     Active Substance: DABRAFENIB
     Dosage: 150 MG, UNK
     Route: 048
     Dates: start: 20160406, end: 20160425
  9. TRAMETINIB [Suspect]
     Active Substance: TRAMETINIB
     Dosage: 1.5 MG, UNK
     Route: 048
     Dates: start: 20151125, end: 20151230
  10. DABRAFENIB [Suspect]
     Active Substance: DABRAFENIB
     Dosage: 200 MG, UNK
     Route: 048
     Dates: start: 20151125, end: 20151221
  11. TRAMETINIB [Suspect]
     Active Substance: TRAMETINIB
     Dosage: 1 MG, UNK
     Route: 048
     Dates: start: 20160119, end: 20160311
  12. TRAMETINIB [Suspect]
     Active Substance: TRAMETINIB
     Dosage: 1 MG, UNK
     Route: 048
     Dates: start: 20160406, end: 20160425

REACTIONS (1)
  - Blood creatinine increased [Not Recovered/Not Resolved]

NARRATIVE: CASE EVENT DATE: 20160315
